FAERS Safety Report 16362149 (Version 1)
Quarter: 2019Q3

REPORT INFORMATION
  Report Type: Spontaneous
  Country: US (occurrence: US)
  Receive Date: 20190525
  Receipt Date: 20190525
  Transmission Date: 20191004
  Serious: Yes (Other)
  Sender: FDA-Public Use
  Company Number: None

PATIENT
  Age: 33 Year
  Sex: Female
  Weight: 103.5 kg

DRUGS (6)
  1. CPAP [Concomitant]
     Active Substance: DEVICE
  2. VITAMIN D [Concomitant]
     Active Substance: VITAMIN D NOS
  3. EFFEXOR [Concomitant]
     Active Substance: VENLAFAXINE HYDROCHLORIDE
  4. MULTIVITAMIN [Concomitant]
     Active Substance: VITAMINS
  5. ZICAM INTENSE SINUS RELIEF [Suspect]
     Active Substance: OXYMETAZOLINE HYDROCHLORIDE
     Indication: NASAL CONGESTION
     Dosage: ?          QUANTITY:3 SPRAY(S);?
     Route: 055
     Dates: start: 20190523, end: 20190524
  6. PREVACID [Concomitant]
     Active Substance: LANSOPRAZOLE

REACTIONS (2)
  - Anosmia [None]
  - Ageusia [None]

NARRATIVE: CASE EVENT DATE: 20190523
